FAERS Safety Report 16334325 (Version 3)
Quarter: 2019Q3

REPORT INFORMATION
  Report Type: Spontaneous
  Country: US (occurrence: US)
  Receive Date: 20190520
  Receipt Date: 20190726
  Transmission Date: 20191004
  Serious: No
  Sender: FDA-Public Use
  Company Number: US-JNJFOC-20190503280

PATIENT
  Age: 79 Year
  Sex: Male
  Weight: 112.9 kg

DRUGS (2)
  1. SIMPONI ARIA [Suspect]
     Active Substance: GOLIMUMAB
     Indication: RHEUMATOID ARTHRITIS
     Dosage: ONGOING
     Route: 042
     Dates: start: 20180501
  2. SIMPONI ARIA [Suspect]
     Active Substance: GOLIMUMAB
     Route: 042
     Dates: start: 20180105, end: 20180301

REACTIONS (2)
  - Product preparation error [Unknown]
  - Product dose omission [Unknown]

NARRATIVE: CASE EVENT DATE: 20190426
